FAERS Safety Report 5067966-0 (Version None)
Quarter: 2006Q3

REPORT INFORMATION
  Report Type: 
  Country: None (occurrence: None)
  Receive Date: 20060802
  Receipt Date: 20051122
  Transmission Date: 20061208
  Serious: Yes (Other)
  Sender: FDA-Public Use
  Company Number: US-MERCK-0511USA03979

PATIENT
  Sex: Female

DRUGS (1)
  1. FOSAMAX [Suspect]
     Route: 048
     Dates: start: 19970101, end: 20040101

REACTIONS (3)
  - BREAST CANCER [None]
  - GINGIVAL INJURY [None]
  - OSTEONECROSIS [None]
